FAERS Safety Report 5644559-5 (Version None)
Quarter: 2008Q1

REPORT INFORMATION
  Report Type: 
  Country: None (occurrence: None)
  Receive Date: 20080229
  Receipt Date: 20070305
  Transmission Date: 20080703
  Serious: No
  Sender: FDA-Public Use
  Company Number: A0641894A

PATIENT
  Age: 45 Year
  Sex: Female
  Weight: 91.8 kg

DRUGS (2)
  1. VALTREX [Suspect]
     Dosage: 2G AS REQUIRED
     Route: 048
     Dates: start: 19970101
  2. NO CONCURRENT MEDICATION [Concomitant]

REACTIONS (1)
  - DRUG INEFFECTIVE [None]
